FAERS Safety Report 9889772 (Version 1)
Quarter: 2014Q1

REPORT INFORMATION
  Report Type: Spontaneous
  Country: US (occurrence: US)
  Receive Date: 20140212
  Receipt Date: 20140212
  Transmission Date: 20141002
  Serious: No
  Sender: FDA-Public Use
  Company Number: US-009507513-1402USA001513

PATIENT
  Age: 32 Year
  Sex: Female
  Weight: 82.54 kg

DRUGS (2)
  1. IMPLANON [Suspect]
     Indication: CONTRACEPTION
     Dosage: UNK
     Route: 059
     Dates: start: 20111202
  2. BENADRYL [Concomitant]

REACTIONS (9)
  - Pain in extremity [Unknown]
  - Pain [Unknown]
  - Implant site warmth [Unknown]
  - Feeling hot [Unknown]
  - Chromaturia [Unknown]
  - Hypoaesthesia [Unknown]
  - Dyspnoea [Unknown]
  - Abdominal pain [Unknown]
  - Menorrhagia [Unknown]
